FAERS Safety Report 15851952 (Version 2)
Quarter: 2024Q2

REPORT INFORMATION
  Report Type: Spontaneous
  Country: ES (occurrence: ES)
  Receive Date: 20190122
  Receipt Date: 20240401
  Transmission Date: 20240716
  Serious: Yes (Other)
  Sender: FDA-Public Use
  Company Number: ES-AUROBINDO-AUR-APL-2019-001657

PATIENT
  Age: 54 Year
  Sex: Female

DRUGS (3)
  1. QUETIAPINE [Suspect]
     Active Substance: QUETIAPINE
     Indication: Depression
     Dosage: UNK
     Route: 048
  2. QUETIAPINE [Suspect]
     Active Substance: QUETIAPINE
     Dosage: 50 MG/DAY TITRATED TO 400 MG/DAY OVER 12 DAYS
     Route: 048
  3. VALPROATE SODIUM [Suspect]
     Active Substance: VALPROATE SODIUM
     Indication: Product used for unknown indication
     Dosage: 700 MILLIGRAM, ONCE A DAY
     Route: 065

REACTIONS (6)
  - Depressed level of consciousness [Unknown]
  - Gait disturbance [Unknown]
  - Speech disorder [Unknown]
  - Pain [Unknown]
  - Physical assault [Unknown]
  - Overdose [Unknown]
